FAERS Safety Report 5701293-0 (Version None)
Quarter: 2008Q2

REPORT INFORMATION
  Report Type: 
  Country: None (occurrence: None)
  Receive Date: 20080407
  Receipt Date: 20080328
  Transmission Date: 20081010
  Serious: Yes (Other)
  Sender: FDA-Public Use
  Company Number: GXKR2008GB03031

PATIENT
  Age: 48 Year
  Sex: Female

DRUGS (3)
  1. TRIMETHOPRIM [Suspect]
     Indication: URINARY TRACT INFECTION
     Dosage: 200 MG, ONCE/SINGLE, ORAL
     Route: 048
     Dates: start: 20080312, end: 20080312
  2. DIAZEPAM [Concomitant]
  3. DIHYDROCODEINE COMPOUND [Concomitant]

REACTIONS (4)
  - BLISTER [None]
  - PARAESTHESIA ORAL [None]
  - RASH [None]
  - SWOLLEN TONGUE [None]
